FAERS Safety Report 6715827-0 (Version None)
Quarter: 2010Q2

REPORT INFORMATION
  Report Type: 
  Country: None (occurrence: None)
  Receive Date: 20100507
  Receipt Date: 20100428
  Transmission Date: 20101027
  Serious: Yes (Hospitalization)
  Sender: FDA-Public Use
  Company Number: FR-SANOFI-AVENTIS-2010SA024692

PATIENT
  Age: 78 Year
  Sex: Female

DRUGS (10)
  1. PLAVIX [Suspect]
     Indication: MYOCARDIAL INFARCTION
     Route: 048
     Dates: end: 20100223
  2. PLAVIX [Suspect]
     Route: 048
     Dates: start: 20100302
  3. PREVISCAN [Suspect]
     Indication: ATRIAL FIBRILLATION
     Route: 048
     Dates: end: 20100223
  4. PREVISCAN [Suspect]
     Dates: start: 20100302
  5. KALEORID [Concomitant]
     Route: 048
  6. LASIX [Concomitant]
     Route: 048
  7. DIAMICRON [Concomitant]
     Route: 048
  8. COVERSYL /FRA/ [Concomitant]
     Route: 048
  9. PRAZOSIN HCL [Concomitant]
     Route: 048
  10. DUSPATALIN ^SOLVAY^ [Concomitant]
     Route: 048

REACTIONS (2)
  - DYSPNOEA [None]
  - MICROCYTIC ANAEMIA [None]
